FAERS Safety Report 8085229-6 (Version None)
Quarter: 2012Q1

REPORT INFORMATION
  Report Type: 
  Country: None (occurrence: None)
  Receive Date: 20120128
  Receipt Date: 20110325
  Transmission Date: 20120608
  Serious: No
  Sender: FDA-Public Use
  Company Number: US-ABBOTT-11P-163-0715080-00

PATIENT
  Sex: Male
  Weight: 122.58 kg

DRUGS (3)
  1. HUMIRA [Suspect]
     Indication: PSORIATIC ARTHROPATHY
     Dates: start: 20080101
  2. NASANEX [Concomitant]
     Indication: HYPERSENSITIVITY
  3. ALLAVERT [Concomitant]
     Indication: HYPERSENSITIVITY

REACTIONS (5)
  - PSORIASIS [None]
  - LIBIDO INCREASED [None]
  - CYST RUPTURE [None]
  - NASOPHARYNGITIS [None]
  - INFLUENZA [None]
